FAERS Safety Report 21238772 (Version 1)
Quarter: 2022Q3

REPORT INFORMATION
  Report Type: Spontaneous
  Country: ES (occurrence: ES)
  Receive Date: 20220822
  Receipt Date: 20220822
  Transmission Date: 20221027
  Serious: Yes (Hospitalization, Other)
  Sender: FDA-Public Use
  Company Number: ES-ROCHE-3144975

PATIENT
  Age: 72 Year

DRUGS (4)
  1. PREDNISONE [Suspect]
     Active Substance: PREDNISONE
     Indication: Myasthenia gravis
     Dosage: UNK
     Route: 065
  2. MYCOPHENOLATE MOFETIL [Suspect]
     Active Substance: MYCOPHENOLATE MOFETIL
     Indication: Myasthenia gravis
     Dosage: UNK
     Route: 065
  3. RITUXIMAB [Suspect]
     Active Substance: RITUXIMAB
     Indication: Myasthenia gravis
     Dosage: 375 MILLIGRAM/SQ. METER, QW, AS PER PROTOCOL WEEKLY FOR FOUR CONSECUTIVE WEEKS AND THEN MONTHLY FOR
     Route: 042
  4. TACROLIMUS [Concomitant]
     Active Substance: TACROLIMUS
     Indication: Myasthenia gravis
     Dosage: UNK
     Route: 065

REACTIONS (2)
  - Pneumonia staphylococcal [Recovered/Resolved]
  - Hypogammaglobulinaemia [Unknown]
